FAERS Safety Report 22532256 (Version 1)
Quarter: 2023Q2

REPORT INFORMATION
  Report Type: Spontaneous
  Country: US (occurrence: US)
  Receive Date: 20230607
  Receipt Date: 20230607
  Transmission Date: 20230722
  Serious: Yes (Other)
  Sender: FDA-Public Use
  Company Number: US-DSPHARMA-2023SUN000748

PATIENT
  Sex: Female
  Weight: 99.773 kg

DRUGS (1)
  1. LATUDA [Suspect]
     Active Substance: LURASIDONE HYDROCHLORIDE
     Indication: Bipolar disorder
     Dosage: 80 MG
     Route: 048

REACTIONS (6)
  - Bipolar disorder [Unknown]
  - Disturbance in attention [Unknown]
  - Apathy [Unknown]
  - Social avoidant behaviour [Unknown]
  - Depression [Unknown]
  - Therapy interrupted [Unknown]
